FAERS Safety Report 6734482-7 (Version None)
Quarter: 2010Q2

REPORT INFORMATION
  Report Type: 
  Country: None (occurrence: None)
  Receive Date: 20100520
  Receipt Date: 20100506
  Transmission Date: 20101027
  Serious: Yes (Other)
  Sender: FDA-Public Use
  Company Number: US-ELI_LILLY_AND_COMPANY-US201005003624

PATIENT
  Age: 71 Year
  Sex: Male

DRUGS (1)
  1. FORTEO [Suspect]

REACTIONS (3)
  - ASTHENIA [None]
  - MUSCULAR WEAKNESS [None]
  - PELVIC FRACTURE [None]
